FAERS Safety Report 17330303 (Version 1)
Quarter: 2020Q1

REPORT INFORMATION
  Report Type: Spontaneous
  Country: GB (occurrence: GB)
  Receive Date: 20200127
  Receipt Date: 20200127
  Transmission Date: 20200409
  Serious: Yes (Hospitalization, Other)
  Sender: FDA-Public Use
  Company Number: GB-MYLANLABS-2020M1008760

PATIENT
  Age: 57 Year
  Sex: Male
  Weight: 63 kg

DRUGS (7)
  1. OMEPRAZOLE. [Suspect]
     Active Substance: OMEPRAZOLE
     Indication: PRODUCT USED FOR UNKNOWN INDICATION
     Dosage: 20 MILLIGRAM, QD
     Route: 048
     Dates: start: 20181213, end: 201901
  2. DEXAMETHASONE. [Concomitant]
     Active Substance: DEXAMETHASONE
     Dosage: 2 MILLIGRAM, QD
     Route: 048
     Dates: start: 20181213, end: 201901
  3. IMFINZI [Suspect]
     Active Substance: DURVALUMAB
     Indication: NON-SMALL CELL LUNG CANCER STAGE IIIB
     Dosage: UNKNOWN
     Route: 042
     Dates: start: 201809, end: 201901
  4. COTRIMOXAZOLE [Concomitant]
     Active Substance: SULFAMETHOXAZOLE\TRIMETHOPRIM
     Indication: ANTIFUNGAL PROPHYLAXIS
     Dosage: 480 MILLIGRAM, QD
     Dates: start: 20180430, end: 20181210
  5. CISPLATIN W/ETOPOSIDE [Suspect]
     Active Substance: CISPLATIN\ETOPOSIDE
     Indication: PRODUCT USED FOR UNKNOWN INDICATION
     Dosage: UNK
     Route: 042
     Dates: start: 201806, end: 201808
  6. ASPIRIN                            /00002701/ [Concomitant]
     Active Substance: ASPIRIN
     Dosage: 75 MILLIGRAM, QD
     Route: 048
     Dates: start: 20181213, end: 201901
  7. FENTANYL. [Concomitant]
     Active Substance: FENTANYL
     Dosage: 25 MICROGRAM, QD
     Route: 062
     Dates: start: 20181213, end: 201901

REACTIONS (9)
  - Pneumocystis jirovecii pneumonia [Unknown]
  - Cough [Unknown]
  - Lung consolidation [Unknown]
  - Dyspnoea [Unknown]
  - Pleural effusion [Unknown]
  - Malaise [Unknown]
  - Weight decreased [Unknown]
  - Lethargy [Unknown]
  - Decreased appetite [Unknown]

NARRATIVE: CASE EVENT DATE: 201810
